FAERS Safety Report 9683724 (Version 3)
Quarter: 2013Q4

REPORT INFORMATION
  Report Type: Spontaneous
  Country: GB (occurrence: GB)
  Receive Date: 20131112
  Receipt Date: 20131125
  Transmission Date: 20140711
  Serious: Yes (Death, Hospitalization, Other)
  Sender: FDA-Public Use
  Company Number: GB-BRISTOL-MYERS SQUIBB COMPANY-19560929

PATIENT
  Age: 66 Year
  Sex: Female
  Weight: 50 kg

DRUGS (2)
  1. ERBITUX SOLN FOR INF [Suspect]
     Indication: COLON CANCER METASTATIC
     Route: 042
     Dates: start: 20130805, end: 20131001
  2. INSULIN [Concomitant]
     Indication: DIABETES MELLITUS
     Route: 058

REACTIONS (7)
  - Pneumonia [Fatal]
  - Cardiac failure [Unknown]
  - Lower respiratory tract infection [Unknown]
  - Haematuria [Unknown]
  - Oedema peripheral [Recovering/Resolving]
  - Nail bed disorder [Recovering/Resolving]
  - Blood magnesium decreased [Recovering/Resolving]
